FAERS Safety Report 10525281 (Version 2)
Quarter: 2014Q4

REPORT INFORMATION
  Report Type: Spontaneous
  Country: JP (occurrence: None)
  Receive Date: 20141015
  Receipt Date: 20141203
  Transmission Date: 20150528
  Serious: Yes (Hospitalization, Disabling, Other)
  Sender: FDA-Public Use
  Company Number: A201405835

PATIENT
  Age: 37 Year
  Sex: Male

DRUGS (18)
  1. DUROTEP [Suspect]
     Active Substance: FENTANYL
     Dosage: 21MG, U, PERCUTANEOUS
     Dates: start: 20140207, end: 20140408
  2. PREDNISOLONE. [Suspect]
     Active Substance: PREDNISOLONE
     Indication: RASH
     Route: 048
     Dates: start: 2007, end: 2008
  3. TOPINA [Concomitant]
     Active Substance: TOPIRAMATE
  4. GABAPEN [Concomitant]
     Active Substance: GABAPENTIN
  5. FENTOS [Suspect]
     Active Substance: FENTANYL
     Dosage: 1MG, U, PERCUTANEOUS
     Dates: start: 20140911
  6. TRAMAL [Suspect]
     Active Substance: TRAMADOL
     Indication: ARTHRALGIA
     Route: 048
  7. RISPERDAL [Suspect]
     Active Substance: RISPERIDONE
     Route: 048
  8. TRUVADA [Concomitant]
     Active Substance: EMTRICITABINE\TENOFOVIR DISOPROXIL FUMARATE
  9. TRAMCET [Concomitant]
     Active Substance: ACETAMINOPHEN\TRAMADOL
  10. TRAZODONE [Concomitant]
     Active Substance: TRAZODONE HYDROCHLORIDE
  11. FOSAMPRENAVIR [Suspect]
     Active Substance: FOSAMPRENAVIR
     Indication: ACQUIRED IMMUNODEFICIENCY SYNDROME
     Route: 048
  12. DEPAKENE [Suspect]
     Active Substance: VALPROIC ACID
     Route: 048
  13. GABALON [Suspect]
     Active Substance: BACLOFEN
     Route: 048
  14. SEROQUEL [Concomitant]
     Active Substance: QUETIAPINE FUMARATE
  15. TIVICAY [Suspect]
     Active Substance: DOLUTEGRAVIR SODIUM
     Route: 048
     Dates: start: 20140424
  16. ISENTRESS [Concomitant]
     Active Substance: RALTEGRAVIR POTASSIUM
  17. LIMAS [Concomitant]
     Active Substance: LITHIUM CARBONATE
  18. DORAL [Concomitant]
     Active Substance: QUAZEPAM

REACTIONS (4)
  - Dizziness [None]
  - Somnolence [None]
  - Osteonecrosis [None]
  - Arthralgia [None]

NARRATIVE: CASE EVENT DATE: 2012
